FAERS Safety Report 4889955-9 (Version None)
Quarter: 2006Q1

REPORT INFORMATION
  Report Type: 
  Country: None (occurrence: None)
  Receive Date: 20060123
  Receipt Date: 20060109
  Transmission Date: 20060701
  Serious: Yes (Death, Other)
  Sender: FDA-Public Use
  Company Number: 2005077934

PATIENT
  Age: 54 Year
  Sex: Male
  Weight: 55.3388 kg

DRUGS (4)
  1. DILANTIN [Suspect]
     Indication: CONVULSION
     Dosage: 300 MG (100 MG, 3 IN 1 D), ORAL
     Route: 048
     Dates: start: 20020101, end: 20050101
  2. DILANTIN [Suspect]
     Indication: EPILEPSY
     Dosage: 300 MG (100 MG, 3 IN 1 D), ORAL
     Route: 048
     Dates: start: 20020101, end: 20050101
  3. SYNTHROID [Concomitant]
  4. PROTONIX [Concomitant]

REACTIONS (6)
  - CONVULSION [None]
  - DEHYDRATION [None]
  - HYPERSENSITIVITY [None]
  - NAUSEA [None]
  - NERVOUS SYSTEM DISORDER [None]
  - VOMITING [None]
